FAERS Safety Report 7525038-7 (Version None)
Quarter: 2011Q2

REPORT INFORMATION
  Report Type: 
  Country: None (occurrence: None)
  Receive Date: 20110606
  Receipt Date: 20110524
  Transmission Date: 20111010
  Serious: Yes (Death, Other)
  Sender: FDA-Public Use
  Company Number: US-SANOFI-AVENTIS-2011SA034394

PATIENT
  Sex: Male

DRUGS (1)
  1. ELITEK [Suspect]
     Route: 065

REACTIONS (2)
  - CARDIAC ARREST [None]
  - NEUTROPENIA [None]
